FAERS Safety Report 5833092-3 (Version None)
Quarter: 2008Q3

REPORT INFORMATION
  Report Type: 
  Country: None (occurrence: None)
  Receive Date: 20080801
  Receipt Date: 20080801
  Transmission Date: 20090109
  Serious: Yes (Hospitalization)
  Sender: FDA-Public Use
  Company Number: None

PATIENT
  Sex: Male
  Weight: 88 kg

DRUGS (16)
  1. CISPLATIN [Suspect]
     Dosage: 191 MG
     Dates: end: 20080714
  2. ALPRAZOLAM [Concomitant]
  3. ASPIRIN [Concomitant]
  4. ATICAN [Concomitant]
  5. COMPAZINE [Concomitant]
  6. FLOMAX [Concomitant]
  7. FLUCONAZOLE [Concomitant]
  8. LASIX [Concomitant]
  9. LISINOPRIL [Concomitant]
  10. NASONEX [Concomitant]
  11. NORVASC [Concomitant]
  12. PRECACID [Concomitant]
  13. REGLAN [Concomitant]
  14. RESTORIL [Concomitant]
  15. VYTORIN [Concomitant]
  16. ZOFRAN [Concomitant]

REACTIONS (3)
  - MUCOSAL INFLAMMATION [None]
  - NAUSEA [None]
  - VOMITING [None]
